FAERS Safety Report 17206165 (Version 11)
Quarter: 2021Q2

REPORT INFORMATION
  Report Type: Report from Study
  Country: None (occurrence: CN)
  Receive Date: 20191227
  Receipt Date: 20210430
  Transmission Date: 20210716
  Serious: Yes (Life-Threatening, Hospitalization)
  Sender: FDA-Public Use
  Company Number: CN-CELLTRION, INC.-2078229

PATIENT
  Age: 42 Year
  Sex: Female
  Weight: 59 kg

DRUGS (6)
  1. METHOTREXATE. [Concomitant]
     Active Substance: METHOTREXATE
  2. ALFACALCIDOL [Concomitant]
     Active Substance: ALFACALCIDOL
  3. MELOXICAM. [Concomitant]
     Active Substance: MELOXICAM
  4. TRUXIMA [Suspect]
     Active Substance: RITUXIMAB-ABBS
  5. METACORTANDRACIN [Concomitant]
  6. FOLIC ACID. [Concomitant]
     Active Substance: FOLIC ACID

REACTIONS (1)
  - Anaphylactic shock [Recovered/Resolved]

NARRATIVE: CASE EVENT DATE: 20191105
